FAERS Safety Report 5027352-6 (Version None)
Quarter: 2006Q2

REPORT INFORMATION
  Report Type: 
  Country: None (occurrence: None)
  Receive Date: 20060501
  Receipt Date: 20060206
  Transmission Date: 20061013
  Serious: No
  Sender: FDA-Public Use
  Company Number: 2006PV008191

PATIENT
  Age: 67 Year
  Sex: Male
  Weight: 108.4097 kg

DRUGS (6)
  1. SYMLIN [Suspect]
     Indication: DIABETES MELLITUS NON-INSULIN-DEPENDENT
     Dosage: 60 MCG; SC
     Route: 058
     Dates: start: 20050901
  2. HUMALOG [Concomitant]
  3. HUMULIN 70/30 [Concomitant]
  4. METFORMIN [Concomitant]
  5. IRON [Concomitant]
  6. PLAVIX [Concomitant]

REACTIONS (4)
  - ALOPECIA [None]
  - LACRIMATION INCREASED [None]
  - RHINORRHOEA [None]
  - SNEEZING [None]
